FAERS Safety Report 12045933 (Version 1)
Quarter: 2016Q1

REPORT INFORMATION
  Report Type: Spontaneous
  Country: US (occurrence: US)
  Receive Date: 20160208
  Receipt Date: 20160208
  Transmission Date: 20160526
  Serious: Yes (Other)
  Sender: FDA-Public Use
  Company Number: US-BAYER-2016-019842

PATIENT
  Age: 38 Year
  Sex: Female

DRUGS (4)
  1. HEPARIN [Concomitant]
     Active Substance: HEPARIN SODIUM
     Dosage: 5000 U, BID
     Route: 058
  2. ACETYLSALICYLIC ACID (} 100 MG) [Suspect]
     Active Substance: ASPIRIN
     Dosage: 1 DF, QD
  3. PRAVASTATIN [Suspect]
     Active Substance: PRAVASTATIN\PRAVASTATIN SODIUM
     Indication: DRUG THERAPY
     Dosage: 20 MG, QD
  4. IMMUNOGLOBULIN [Concomitant]
     Active Substance: HUMAN IMMUNOGLOBULIN G
     Dosage: 1 MG/KG, Q4WK
     Route: 042

REACTIONS (3)
  - Maternal exposure during pregnancy [None]
  - Premature labour [None]
  - Off label use [None]
